FAERS Safety Report 6374160-X (Version None)
Quarter: 2009Q3

REPORT INFORMATION
  Report Type: 
  Country: None (occurrence: None)
  Receive Date: 20090924
  Receipt Date: 20090612
  Transmission Date: 20100115
  Serious: Yes (Other)
  Sender: FDA-Public Use
  Company Number: US-ASTRAZENECA-2009UW15729

PATIENT
  Age: 30 Year
  Sex: Male

DRUGS (5)
  1. SEROQUEL [Suspect]
     Indication: SLEEP DISORDER
     Route: 048
  2. SEROQUEL [Suspect]
     Route: 048
  3. EFFEXOR [Concomitant]
  4. TRILEPTAL [Concomitant]
  5. WELLBUTRIN [Concomitant]

REACTIONS (4)
  - DEPRESSION [None]
  - FATIGUE [None]
  - SOMNOLENCE [None]
  - SUICIDAL IDEATION [None]
